FAERS Safety Report 9813902 (Version 2)
Quarter: 2014Q1

REPORT INFORMATION
  Report Type: Report from Study
  Country: JP (occurrence: JP)
  Receive Date: 20140113
  Receipt Date: 20140204
  Transmission Date: 20141002
  Serious: Yes (Hospitalization)
  Sender: FDA-Public Use
  Company Number: JP-TAKEDA-2014TJP000461

PATIENT
  Age: 72 Year
  Sex: Male
  Weight: 63 kg

DRUGS (7)
  1. ALOGLIPTIN [Suspect]
     Indication: TYPE 2 DIABETES MELLITUS
     Dosage: 25 MG, QD
     Route: 048
     Dates: start: 20121108, end: 20130919
  2. AMARYL [Concomitant]
     Indication: TYPE 2 DIABETES MELLITUS
     Dosage: 0.5 MG, 1 DAYS
     Route: 048
     Dates: end: 20130919
  3. METGLUCO [Concomitant]
     Indication: TYPE 2 DIABETES MELLITUS
     Dosage: 750 MG, 1 DAYS
     Route: 048
     Dates: end: 20130919
  4. GLUCOBAY [Concomitant]
     Indication: TYPE 2 DIABETES MELLITUS
     Dosage: 150 MG, 1 DAYS
     Route: 048
     Dates: end: 20121221
  5. SEIBULE [Concomitant]
     Indication: TYPE 2 DIABETES MELLITUS
     Dosage: 150 MG, 1 DAYS
     Route: 048
     Dates: start: 20121222, end: 20130919
  6. CRESTOR [Concomitant]
     Dosage: 2.5 MG, 1 DAYS
     Route: 048
  7. PLAVIX [Concomitant]
     Dosage: 75 MG, 1 DAYS
     Route: 048

REACTIONS (2)
  - Aortic aneurysm [Recovered/Resolved]
  - Condition aggravated [Recovered/Resolved]
